FAERS Safety Report 23826649 (Version 1)
Quarter: 2024Q2

REPORT INFORMATION
  Report Type: Spontaneous
  Country: US (occurrence: US)
  Receive Date: 20240507
  Receipt Date: 20240507
  Transmission Date: 20240716
  Serious: No
  Sender: FDA-Public Use
  Company Number: US-BAYER-2024A066983

PATIENT
  Age: 73 Year
  Sex: Female

DRUGS (2)
  1. ALEVE [Suspect]
     Active Substance: NAPROXEN SODIUM
     Indication: Abdominal pain upper
     Dosage: 0.5 DF, QD
     Route: 048
     Dates: start: 200405, end: 20240506
  2. ALEVE [Suspect]
     Active Substance: NAPROXEN SODIUM
     Indication: Abdominal pain upper
     Dosage: 1 DF, QD
     Route: 048
     Dates: start: 200405, end: 20240506

REACTIONS (1)
  - Drug ineffective for unapproved indication [Recovering/Resolving]

NARRATIVE: CASE EVENT DATE: 20240501
